FAERS Safety Report 6996947-2 (Version None)
Quarter: 2010Q3

REPORT INFORMATION
  Report Type: 
  Country: None (occurrence: None)
  Receive Date: 20100918
  Receipt Date: 20091008
  Transmission Date: 20110219
  Serious: No
  Sender: FDA-Public Use
  Company Number: US-WYE-H10788909

PATIENT
  Sex: Male
  Weight: 101.24 kg

DRUGS (2)
  1. PRISTIQ [Suspect]
     Indication: DEPRESSION
     Route: 048
     Dates: start: 20090829, end: 20090913
  2. LORAZEPAM [Concomitant]

REACTIONS (3)
  - INSOMNIA [None]
  - NIGHT SWEATS [None]
  - RESTLESSNESS [None]
